FAERS Safety Report 7551380-X (Version None)
Quarter: 2011Q2

REPORT INFORMATION
  Report Type: 
  Country: None (occurrence: None)
  Receive Date: 20110616
  Receipt Date: 20110606
  Transmission Date: 20111010
  Serious: Yes (Hospitalization)
  Sender: FDA-Public Use
  Company Number: DE-AMGEN-DEUCT2011028668

PATIENT
  Age: 68 Year
  Sex: Female
  Weight: 73 kg

DRUGS (12)
  1. ETANERCEPT [Suspect]
     Dosage: UNK
     Dates: start: 20040701, end: 20100801
  2. ACTONEL [Concomitant]
     Dosage: 35 MG, 1X/DAY
  3. ACTONEL [Concomitant]
     Dosage: UNK
     Dates: start: 20070601, end: 20100801
  4. FELODIPINE [Concomitant]
     Dosage: 5 MG, 1X/DAY
  5. METFORMIN HCL [Suspect]
     Dosage: UNK
     Dates: start: 19941001, end: 20100801
  6. METFORMIN HCL [Suspect]
     Dosage: 10 MG, DAILY
     Dates: start: 20110302
  7. LEVOTHYROXINE SODIUM [Concomitant]
     Dosage: 75 UG, 1X/DAY
  8. ETANERCEPT [Suspect]
     Indication: RHEUMATOID ARTHRITIS
     Dosage: UNK
     Dates: start: 20040301, end: 20040601
  9. PANTOPRAZOLE [Concomitant]
     Dosage: 80 MG, UNK
     Dates: start: 20090601, end: 20100801
  10. PANTOPRAZOLE [Concomitant]
     Dosage: 40 MG, 1X/DAY
  11. CANDESARTAN CILEXETIL [Concomitant]
     Dosage: 16 MG, 1X/DAY
  12. BISOPROLOL FUMARATE [Concomitant]
     Dosage: 10 MG, UNK

REACTIONS (1)
  - OVARIAN CANCER [None]
